FAERS Safety Report 13305202 (Version 2)
Quarter: 2017Q2

REPORT INFORMATION
  Report Type: Spontaneous
  Country: US (occurrence: US)
  Receive Date: 20170308
  Receipt Date: 20170613
  Transmission Date: 20170830
  Serious: Yes (Hospitalization, Other)
  Sender: FDA-Public Use
  Company Number: US-BRISTOL-MYERS SQUIBB COMPANY-BMS-2017-017776

PATIENT

DRUGS (2)
  1. ABILIFY [Suspect]
     Active Substance: ARIPIPRAZOLE
     Indication: ANXIETY
     Route: 065
  2. ABILIFY [Suspect]
     Active Substance: ARIPIPRAZOLE
     Indication: MAJOR DEPRESSION
     Dosage: UNK
     Route: 065
     Dates: start: 2010, end: 20161001

REACTIONS (9)
  - Obsessive-compulsive disorder [Unknown]
  - Suicidal ideation [Unknown]
  - Gambling disorder [Unknown]
  - Brain injury [Unknown]
  - Injury [Unknown]
  - Mental disorder [Unknown]
  - Emotional distress [Unknown]
  - Suicide attempt [Unknown]
  - Impulsive behaviour [Unknown]
